FAERS Safety Report 13563599 (Version 1)
Quarter: 2017Q2

REPORT INFORMATION
  Report Type: Spontaneous
  Country: BR (occurrence: BR)
  Receive Date: 20170519
  Receipt Date: 20170519
  Transmission Date: 20170830
  Serious: Yes (Hospitalization)
  Sender: FDA-Public Use
  Company Number: BR-009507513-1705BRA007138

PATIENT
  Age: 25 Year
  Sex: Female
  Weight: 72 kg

DRUGS (5)
  1. NUVARING [Suspect]
     Active Substance: ETHINYL ESTRADIOL\ETONOGESTREL
     Dosage: ONE RING, 21 DAYS (Q3W) OF USE WITHOUT FREE-RING INTERVAL
     Route: 067
     Dates: start: 20170331
  2. FLANAX CAPS [Concomitant]
     Active Substance: NAPROXEN
     Indication: MIGRAINE
     Dosage: 550 MG (1 TABLET), FREQUENCY REPORTED AS ^WHEN SHE HAD MIGRAINE CRISIS^
     Route: 048
  3. NUVARING [Suspect]
     Active Substance: ETHINYL ESTRADIOL\ETONOGESTREL
     Indication: CONTRACEPTION
     Dosage: ONE RING, 21 DAYS OF USE AND 7 DAYS OF PAUSE
     Route: 067
     Dates: start: 2005, end: 2012
  4. ADVIL [Concomitant]
     Active Substance: IBUPROFEN
     Dosage: UNK
  5. PLASIL [Suspect]
     Active Substance: METOCLOPRAMIDE HYDROCHLORIDE
     Indication: MIGRAINE
     Dosage: UNK
     Route: 042
     Dates: start: 2007

REACTIONS (10)
  - Migraine [Recovered/Resolved]
  - Agitation [Recovered/Resolved]
  - Syncope [Recovered/Resolved]
  - Menstrual disorder [Recovered/Resolved]
  - Metrorrhagia [Not Recovered/Not Resolved]
  - Menstrual disorder [Not Recovered/Not Resolved]
  - Drug prescribing error [Unknown]
  - Inappropriate schedule of drug administration [Unknown]
  - Drug hypersensitivity [Not Recovered/Not Resolved]
  - Paraesthesia [Recovered/Resolved]

NARRATIVE: CASE EVENT DATE: 2005
